FAERS Safety Report 24711747 (Version 1)
Quarter: 2024Q4

REPORT INFORMATION
  Report Type: Spontaneous
  Country: FR (occurrence: FR)
  Receive Date: 20241209
  Receipt Date: 20241209
  Transmission Date: 20250115
  Serious: Yes (Life-Threatening, Other)
  Sender: CIPLA
  Company Number: FR-AFSSAPS-RE2024001179

PATIENT

DRUGS (3)
  1. RIVAROXABAN [Suspect]
     Active Substance: RIVAROXABAN
     Indication: Poisoning deliberate
     Dosage: 600 MILLIGRAM, 1 TOTAL
     Route: 048
     Dates: start: 20240724, end: 20240724
  2. FLECAINIDE [Suspect]
     Active Substance: FLECAINIDE
     Indication: Poisoning deliberate
     Dosage: 2250 MILLIGRAM, 1 TOTAL
     Route: 048
     Dates: start: 20240724, end: 20240724
  3. SOTALOL [Suspect]
     Active Substance: SOTALOL
     Indication: Poisoning deliberate
     Dosage: 4800 MILLIGRAM, 1 TOTAL
     Route: 048
     Dates: start: 20240724, end: 20240724

REACTIONS (1)
  - Cardiogenic shock [Recovered/Resolved]

NARRATIVE: CASE EVENT DATE: 20240724
